FAERS Safety Report 5394895-5 (Version None)
Quarter: 2007Q3

REPORT INFORMATION
  Report Type: 
  Country: None (occurrence: None)
  Receive Date: 20070720
  Receipt Date: 20070710
  Transmission Date: 20080115
  Serious: Yes (Other)
  Sender: FDA-Public Use
  Company Number: 16944

PATIENT
  Age: 76 Year
  Sex: Female

DRUGS (7)
  1. FOLINIC ACID [Suspect]
     Indication: RECTAL CANCER
     Dosage: 250 MG/M2 PER_CYCLE
     Dates: start: 20050201
  2. OXALIPLATIN [Suspect]
     Indication: RECTAL CANCER
     Dosage: 100 MG/M2 PER_CYCLE
     Dates: start: 20050201
  3. FLUOROURACIL [Suspect]
     Indication: RECTAL CANCER
     Dosage: 800 MG/M2 PER_CYCLE
     Dates: start: 20050201
  4. RALTITREXED [Suspect]
     Indication: RECTAL CANCER
     Dosage: 2.5 MG/M2 PER_CYCLE
     Dates: start: 20050201
  5. RADIOTHERAPY [Suspect]
     Indication: RECTAL CANCER
     Dates: start: 20050201
  6. CAPECITABINE [Concomitant]
  7. IRINOTECAN HCL [Concomitant]

REACTIONS (9)
  - ATRIAL FIBRILLATION [None]
  - CARCINOEMBRYONIC ANTIGEN INCREASED [None]
  - DISEASE PROGRESSION [None]
  - METASTASIS [None]
  - METASTATIC SALIVARY GLAND CANCER [None]
  - MUCOSAL INFLAMMATION [None]
  - NECROSIS [None]
  - SKIN CANCER METASTATIC [None]
  - SKIN NODULE [None]
